FAERS Safety Report 5153650-1 (Version None)
Quarter: 2006Q4

REPORT INFORMATION
  Report Type: 
  Country: None (occurrence: None)
  Receive Date: 20061114
  Receipt Date: 20061102
  Transmission Date: 20070319
  Serious: Yes (Hospitalization, Other)
  Sender: FDA-Public Use
  Company Number: 2006071496

PATIENT
  Age: 77 Year
  Sex: Male
  Weight: 78 kg

DRUGS (1)
  1. SUTENT [Suspect]
     Indication: GASTROINTESTINAL STROMAL TUMOUR
     Dosage: 50 MG (50 MG, 1 IN D), ORAL
     Route: 048
     Dates: start: 20060426

REACTIONS (6)
  - BRONCHOPNEUMONIA [None]
  - GENERAL PHYSICAL HEALTH DETERIORATION [None]
  - GENERALISED OEDEMA [None]
  - HYDRONEPHROSIS [None]
  - PNEUMONIA [None]
  - PYELONEPHRITIS [None]
